FAERS Safety Report 7455975-3 (Version None)
Quarter: 2011Q2

REPORT INFORMATION
  Report Type: 
  Country: None (occurrence: None)
  Receive Date: 20110503
  Receipt Date: 20110426
  Transmission Date: 20111010
  Serious: Yes (Hospitalization, Other)
  Sender: FDA-Public Use
  Company Number: US-MERCK-1003USA00174

PATIENT
  Age: 42 Year
  Sex: Female

DRUGS (6)
  1. PREVACID [Concomitant]
     Indication: GASTROOESOPHAGEAL REFLUX DISEASE
     Route: 065
     Dates: start: 19950101
  2. ACTONEL [Suspect]
     Route: 065
  3. FOSAMAX [Suspect]
     Route: 048
     Dates: start: 20010101, end: 20020101
  4. ZOLOFT [Concomitant]
     Indication: DEPRESSION
     Route: 065
     Dates: start: 19980101
  5. FOSAMAX [Suspect]
     Indication: OSTEOPOROSIS
     Route: 048
     Dates: start: 19990101, end: 20080101
  6. FORTEO [Suspect]
     Route: 065

REACTIONS (63)
  - OSTEOARTHRITIS [None]
  - ARTERIOSCLEROSIS [None]
  - RADICULITIS LUMBOSACRAL [None]
  - ARTHRALGIA [None]
  - UTERINE DISORDER [None]
  - HEADACHE [None]
  - GINGIVAL DISORDER [None]
  - ARTHRITIS [None]
  - CHOLELITHIASIS [None]
  - CHRONIC OBSTRUCTIVE PULMONARY DISEASE [None]
  - CHEST PAIN [None]
  - CARDIAC DISORDER [None]
  - PERIPHERAL VASCULAR DISORDER [None]
  - ORAL INFECTION [None]
  - HAND FRACTURE [None]
  - OSTEOMYELITIS [None]
  - ANAEMIA [None]
  - STEROID THERAPY [None]
  - RIB FRACTURE [None]
  - MIGRAINE [None]
  - NEPHROLITHIASIS [None]
  - VENOUS INSUFFICIENCY [None]
  - ORAL TORUS [None]
  - INTESTINAL OBSTRUCTION [None]
  - FIBROMYALGIA [None]
  - DIVERTICULUM [None]
  - DIABETES MELLITUS [None]
  - BREAST PAIN [None]
  - ADVERSE EVENT [None]
  - BREAST DISORDER [None]
  - CONSTIPATION [None]
  - LUNG INFILTRATION [None]
  - CORONARY ARTERY DISEASE [None]
  - COUGH [None]
  - PHOBIA [None]
  - NERVE COMPRESSION [None]
  - EXOSTOSIS [None]
  - JOINT SWELLING [None]
  - ABDOMINAL ADHESIONS [None]
  - ABDOMINAL PAIN UPPER [None]
  - NEOPLASM [None]
  - CHOLECYSTITIS [None]
  - BRONCHITIS CHRONIC [None]
  - CARDIAC MURMUR [None]
  - ULCER [None]
  - BACK PAIN [None]
  - IMPAIRED HEALING [None]
  - ANGINA PECTORIS [None]
  - ATELECTASIS [None]
  - CARDIAC FAILURE CONGESTIVE [None]
  - HIATUS HERNIA [None]
  - EMPHYSEMA [None]
  - BIPOLAR DISORDER [None]
  - OSTEONECROSIS OF JAW [None]
  - SQUAMOUS CELL CARCINOMA OF SKIN [None]
  - CONVULSION [None]
  - APPENDICITIS [None]
  - DRUG ABUSE [None]
  - NEURITIS [None]
  - MASTOID ABSCESS [None]
  - SLEEP APNOEA SYNDROME [None]
  - HYPERCHOLESTEROLAEMIA [None]
  - HAEMOPTYSIS [None]
